FAERS Safety Report 9994119 (Version 1)
Quarter: 2014Q1

REPORT INFORMATION
  Report Type: Spontaneous
  Country: FR (occurrence: FR)
  Receive Date: 20140310
  Receipt Date: 20140310
  Transmission Date: 20141002
  Serious: Yes (Death)
  Sender: FDA-Public Use
  Company Number: FR-CELGENEUS-056-50794-14030324

PATIENT
  Sex: Female
  Weight: 55 kg

DRUGS (3)
  1. VIDAZA [Suspect]
     Indication: REFRACTORY ANAEMIA WITH AN EXCESS OF BLASTS
     Route: 058
     Dates: start: 20120903, end: 201212
  2. RED BLOOD CELLS [Concomitant]
     Indication: PRODUCT USED FOR UNKNOWN INDICATION
     Route: 041
  3. PLATELETS [Concomitant]
     Indication: PRODUCT USED FOR UNKNOWN INDICATION
     Route: 041

REACTIONS (2)
  - Acute myeloid leukaemia [Fatal]
  - Drug ineffective [Unknown]
